FAERS Safety Report 21286628 (Version 1)
Quarter: 2022Q3

REPORT INFORMATION
  Report Type: Other
  Country: US (occurrence: None)
  Receive Date: 20220902
  Receipt Date: 20220902
  Transmission Date: 20221026
  Serious: Yes (Other)
  Sender: FDA-Public Use
  Company Number: US-ROCHE-2533016

PATIENT
  Sex: Female

DRUGS (13)
  1. VENCLEXTA [Suspect]
     Active Substance: VENETOCLAX
     Indication: Waldenstrom^s macroglobulinaemia
     Dosage: TAKE 8 TABLET(S) BY MOUTH (800 MG) EVERY DAY WITH MEALS AND WATER AT THE SAME TIME EACH DAY
     Route: 048
  2. RITUXIMAB [Suspect]
     Active Substance: RITUXIMAB
     Indication: Waldenstrom^s macroglobulinaemia
     Route: 065
  3. ACYCLOVIR [Concomitant]
     Active Substance: ACYCLOVIR
  4. BELSOMRA [Concomitant]
     Active Substance: SUVOREXANT
  5. CALCIUM CARBONATE [Concomitant]
     Active Substance: CALCIUM CARBONATE
  6. CYCLOBENZAPRINE [Concomitant]
     Active Substance: CYCLOBENZAPRINE
  7. HYDROXYCHLOROQUINE [Concomitant]
     Active Substance: HYDROXYCHLOROQUINE
  8. LEVOTHYROXINE [Concomitant]
     Active Substance: LEVOTHYROXINE
  9. ONDANSETRON [Concomitant]
     Active Substance: ONDANSETRON
  10. PREGABALIN [Concomitant]
     Active Substance: PREGABALIN
  11. RESTASIS [Concomitant]
     Active Substance: CYCLOSPORINE
  12. SPIRONOLACTONE [Concomitant]
     Active Substance: SPIRONOLACTONE
  13. THIAMINE [Concomitant]
     Active Substance: THIAMINE

REACTIONS (10)
  - Off label use [Unknown]
  - Hair texture abnormal [Unknown]
  - Fatigue [Unknown]
  - Agitation [Unknown]
  - Impatience [Unknown]
  - Feeling abnormal [Unknown]
  - Lower respiratory tract infection [Unknown]
  - Blood pressure decreased [Unknown]
  - Pyrexia [Unknown]
  - Loss of consciousness [Unknown]
